FAERS Safety Report 21899467 (Version 1)
Quarter: 2023Q1

REPORT INFORMATION
  Report Type: Spontaneous
  Country: US (occurrence: US)
  Receive Date: 20230123
  Receipt Date: 20230123
  Transmission Date: 20230418
  Serious: No
  Sender: FDA-Public Use
  Company Number: US-NOVOPROD-952911

PATIENT
  Sex: Female

DRUGS (2)
  1. OZEMPIC [Suspect]
     Active Substance: SEMAGLUTIDE
     Indication: Diabetes mellitus
     Dosage: UNK
     Route: 058
  2. HUMIRA [Suspect]
     Active Substance: ADALIMUMAB
     Indication: Psoriatic arthropathy
     Dosage: UNK

REACTIONS (11)
  - Decreased appetite [Unknown]
  - Skin fissures [Unknown]
  - Skin discharge [Unknown]
  - Haemorrhage [Unknown]
  - Lacrimation increased [Unknown]
  - Pruritus [Unknown]
  - Muscle tightness [Unknown]
  - Viral infection [Unknown]
  - Rash [Unknown]
  - Dizziness [Unknown]
  - Nausea [Unknown]
